FAERS Safety Report 8055023-0 (Version None)
Quarter: 2011Q4

REPORT INFORMATION
  Report Type: 
  Country: None (occurrence: None)
  Receive Date: 20111216
  Receipt Date: 20110406
  Transmission Date: 20120403
  Serious: Yes (Other)
  Sender: FDA-Public Use
  Company Number: 275162USA

PATIENT
  Age: 32 Year
  Sex: Female
  Weight: 98.8842 kg

DRUGS (1)
  1. PARAGARD T 380A [Suspect]
     Indication: CONTRACEPTION
     Dosage: I. U.
     Route: 015
     Dates: start: 20040608, end: 20110322

REACTIONS (2)
  - DEVICE BREAKAGE [None]
  - DEVICE DISLOCATION [None]
